FAERS Safety Report 5619832-7 (Version None)
Quarter: 2008Q1

REPORT INFORMATION
  Report Type: 
  Country: None (occurrence: None)
  Receive Date: 20080208
  Receipt Date: 20080204
  Transmission Date: 20080703
  Serious: Yes (Life-Threatening, Hospitalization, Other)
  Sender: FDA-Public Use
  Company Number: PHHO2007US15471

PATIENT
  Age: 37 Year
  Sex: Female
  Weight: 78.1 kg

DRUGS (14)
  1. CERTICAN [Suspect]
     Indication: RENAL TRANSPLANT
     Dosage: 3MG DAILY DOSE
     Route: 048
     Dates: start: 20070717, end: 20071224
  2. NEORAL [Suspect]
     Indication: RENAL TRANSPLANT
     Dosage: 300 MG, QD
     Route: 048
     Dates: start: 20070717, end: 20071224
  3. PREDNISONE TAB [Concomitant]
     Dates: start: 20070811
  4. ECOTRIN [Concomitant]
  5. LIPITOR [Concomitant]
  6. VALCYTE [Concomitant]
  7. NIFEDIPINE [Concomitant]
  8. FOLTX [Concomitant]
  9. PROCRIT [Concomitant]
  10. PEPCID [Concomitant]
  11. COLACE [Concomitant]
  12. ULTRAM [Concomitant]
  13. ZOFRAN [Concomitant]
  14. ASPIRIN [Concomitant]
     Indication: CARDIOVASCULAR EVENT PROPHYLAXIS

REACTIONS (14)
  - ACUTE RESPIRATORY FAILURE [None]
  - BACK PAIN [None]
  - BLOOD CREATININE INCREASED [None]
  - COMPLICATIONS OF TRANSPLANTED KIDNEY [None]
  - COUGH [None]
  - ENDOTRACHEAL INTUBATION [None]
  - FLUID OVERLOAD [None]
  - GRAFT INFECTION [None]
  - KIDNEY TRANSPLANT REJECTION [None]
  - PNEUMONIA [None]
  - PYELONEPHRITIS [None]
  - RENAL IMPAIRMENT [None]
  - RESPIRATORY DISTRESS [None]
  - SPUTUM DISCOLOURED [None]
